FAERS Safety Report 16641418 (Version 2)
Quarter: 2019Q3

REPORT INFORMATION
  Report Type: Report from Study
  Country: MX (occurrence: MX)
  Receive Date: 20190729
  Receipt Date: 20190819
  Transmission Date: 20191004
  Serious: Yes (Hospitalization, Other)
  Sender: FDA-Public Use
  Company Number: PHHY2019MX161612

PATIENT
  Age: 58 Year
  Sex: Female
  Weight: 52 kg

DRUGS (5)
  1. ADEPSIQUE [Concomitant]
     Dosage: 0.25 DF, QHS
     Route: 048
  2. TEGRETOL [Suspect]
     Active Substance: CARBAMAZEPINE
     Indication: IRRITABILITY
     Dosage: 0.5 DF, BID
     Route: 048
     Dates: start: 201608, end: 20190811
  3. ADEPSIQUE [Concomitant]
     Indication: IRRITABILITY
     Dosage: 0.25 DF, BID (3 YEARS AGO)
     Route: 048
  4. TEGRETOL [Suspect]
     Active Substance: CARBAMAZEPINE
     Dosage: 0.5 DF, (ONLY 6 DAYS A WEEK)
     Route: 048
  5. ADEPSIQUE [Concomitant]
     Dosage: 0.25 DF, EVERY 3 DAYS IN THE MORNING
     Route: 048

REACTIONS (14)
  - Pain [Recovered/Resolved]
  - Gastric infection [Unknown]
  - Wrong technique in product usage process [Not Recovered/Not Resolved]
  - Product prescribing error [Unknown]
  - Nephrolithiasis [Recovering/Resolving]
  - Kidney infection [Recovered/Resolved]
  - Product use in unapproved indication [Not Recovered/Not Resolved]
  - Dizziness [Recovered/Resolved]
  - Typhoid fever [Recovered/Resolved]
  - Gastrointestinal infection [Unknown]
  - Irritable bowel syndrome [Not Recovered/Not Resolved]
  - Abdominal discomfort [Not Recovered/Not Resolved]
  - Diarrhoea [Unknown]
  - Anxiety [Not Recovered/Not Resolved]

NARRATIVE: CASE EVENT DATE: 2016
